FAERS Safety Report 16940195 (Version 1)
Quarter: 2019Q4

REPORT INFORMATION
  Report Type: Spontaneous
  Country: IT (occurrence: IT)
  Receive Date: 20191021
  Receipt Date: 20191021
  Transmission Date: 20200122
  Serious: Yes (Hospitalization)
  Sender: FDA-Public Use
  Company Number: IT-TEVA-2019-IT-1125300

PATIENT
  Age: 64 Year
  Sex: Male

DRUGS (1)
  1. OLMESARTAN [Suspect]
     Active Substance: OLMESARTAN
     Indication: HYPERTENSION
     Route: 065

REACTIONS (3)
  - Intestinal villi atrophy [Recovered/Resolved]
  - Lymphocytosis [Recovered/Resolved]
  - Sprue-like enteropathy [Recovered/Resolved]
